FAERS Safety Report 16356487 (Version 1)
Quarter: 2019Q2

REPORT INFORMATION
  Report Type: Spontaneous
  Country: US (occurrence: US)
  Receive Date: 20190527
  Receipt Date: 20190527
  Transmission Date: 20190711
  Serious: No
  Sender: FDA-Public Use
  Company Number: US-BIOGEN-2019BI00729629

PATIENT
  Sex: Female

DRUGS (1)
  1. AVONEX [Suspect]
     Active Substance: INTERFERON BETA-1A
     Indication: MULTIPLE SCLEROSIS
     Route: 030
     Dates: start: 20090402, end: 20190208

REACTIONS (5)
  - Pain in extremity [Not Recovered/Not Resolved]
  - Flushing [Not Recovered/Not Resolved]
  - Injection site reaction [Unknown]
  - Multiple sclerosis relapse [Unknown]
  - Hypoaesthesia [Not Recovered/Not Resolved]
